FAERS Safety Report 4887760-0 (Version None)
Quarter: 2006Q1

REPORT INFORMATION
  Report Type: 
  Country: None (occurrence: None)
  Receive Date: 20060118
  Receipt Date: 20060105
  Transmission Date: 20060701
  Serious: Yes (Life-Threatening, Hospitalization)
  Sender: FDA-Public Use
  Company Number: 220845

PATIENT
  Age: 52 Year
  Sex: Female
  Weight: 72.3 kg

DRUGS (8)
  1. RITUXIMAB (RITUXIMAB) CONC FOR SOLUTION FOR INFUSION [Suspect]
     Indication: RHEUMATOID ARTHRITIS
     Dosage: 1 G, DAYS 1 + 15, INTRAVENOUS
     Route: 042
     Dates: start: 20041110, end: 20041124
  2. METHYLPREDNISOLONE [Suspect]
     Indication: RHEUMATOID ARTHRITIS
     Dosage: 100 MG, DAYS 1 + 15, INTRAVENOUS
     Route: 042
  3. PREDNISONE [Suspect]
     Dosage: UNK MG, UNK, ORAL
     Route: 048
  4. FOLIC ACID [Concomitant]
  5. VICODIN [Concomitant]
  6. ALENDRONATE (ALENDRONATE SODIUM) [Concomitant]
  7. VENLAFAXINE HCL [Concomitant]
  8. CALTRATE PLUS (CALCIUM NOS, CHOLECALCIFEROL) [Concomitant]

REACTIONS (1)
  - ACUTE MYOCARDIAL INFARCTION [None]
